FAERS Safety Report 5642250-2 (Version None)
Quarter: 2008Q1

REPORT INFORMATION
  Report Type: 
  Country: None (occurrence: None)
  Receive Date: 20080225
  Receipt Date: 20080219
  Transmission Date: 20080703
  Serious: Yes (Hospitalization, Other)
  Sender: FDA-Public Use
  Company Number: 2008BI001765

PATIENT
  Age: 45 Year
  Sex: Male
  Weight: 86 kg

DRUGS (6)
  1. TYSABRI [Suspect]
     Indication: MULTIPLE SCLEROSIS
     Dosage: 300 MG; QM; IV
     Route: 042
     Dates: start: 20070911, end: 20071128
  2. TYSABRI [Suspect]
     Dosage: 300 MG; QM; IV
     Route: 042
  3. ZOLOFT [Concomitant]
  4. PROTONIX [Concomitant]
  5. BACLOFEN [Concomitant]
  6. TYLENOL (CAPLET) [Concomitant]

REACTIONS (4)
  - CENTRAL NERVOUS SYSTEM LYMPHOMA [None]
  - DIFFUSE LARGE B-CELL LYMPHOMA [None]
  - ENTEROCOCCAL BACTERAEMIA [None]
  - URINARY TRACT INFECTION PSEUDOMONAL [None]
